FAERS Safety Report 24753707 (Version 1)
Quarter: 2024Q4

REPORT INFORMATION
  Report Type: Spontaneous
  Country: US (occurrence: US)
  Receive Date: 20241219
  Receipt Date: 20241219
  Transmission Date: 20250115
  Serious: Yes (Other)
  Sender: OXFORD PHARMACEUTICALS, LLC
  Company Number: US-Oxford Pharmaceuticals, LLC-2166971

PATIENT
  Age: 26 Year
  Sex: Female

DRUGS (7)
  1. LORAZEPAM [Suspect]
     Active Substance: LORAZEPAM
     Indication: Catatonia
  2. ARIPIPRAZOLE [Concomitant]
     Active Substance: ARIPIPRAZOLE
  3. RISPERIDONE [Concomitant]
     Active Substance: RISPERIDONE
  4. VALPROIC ACID [Concomitant]
     Active Substance: VALPROIC ACID
  5. CHLORPROMAZINE [Concomitant]
     Active Substance: CHLORPROMAZINE
  6. HALOPERIDOL [Concomitant]
     Active Substance: HALOPERIDOL
  7. QUETIAPINE [Concomitant]
     Active Substance: QUETIAPINE

REACTIONS (1)
  - Therapy partial responder [Unknown]
